FAERS Safety Report 7110168-4 (Version None)
Quarter: 2010Q4

REPORT INFORMATION
  Report Type: 
  Country: None (occurrence: None)
  Receive Date: 20101118
  Receipt Date: 20101103
  Transmission Date: 20110411
  Serious: Yes (Other)
  Sender: FDA-Public Use
  Company Number: PHFR2010GB02524

PATIENT
  Sex: Male
  Weight: 86.5 kg

DRUGS (6)
  1. CLOZARIL [Suspect]
     Indication: SCHIZOPHRENIA, PARANOID TYPE
     Dosage: 37.5 MG, UNK
     Route: 048
     Dates: start: 20100406
  2. CLOZARIL [Suspect]
     Dosage: UNK
     Route: 048
     Dates: start: 20100821
  3. VALPROATE SODIUM [Concomitant]
     Dosage: 1000 MG, UNK
     Route: 048
  4. SENNA [Concomitant]
     Dosage: 15 MG, UNK
     Route: 048
  5. NULYTELY [Concomitant]
     Dosage: UNK
  6. KEPPRA [Concomitant]
     Dosage: 500 MG, UNK
     Route: 048

REACTIONS (5)
  - ANXIETY [None]
  - BLOOD TEST ABNORMAL [None]
  - HEART RATE INCREASED [None]
  - SCHIZOPHRENIA [None]
  - TACHYCARDIA [None]
